FAERS Safety Report 10224899 (Version 1)
Quarter: 2014Q2

REPORT INFORMATION
  Report Type: Spontaneous
  Country: CN (occurrence: CN)
  Receive Date: 20140609
  Receipt Date: 20140609
  Transmission Date: 20141212
  Serious: Yes (Other)
  Sender: FDA-Public Use
  Company Number: CN-GLAXOSMITHKLINE-B1001477A

PATIENT
  Age: 3 Year
  Sex: Female
  Weight: 16 kg

DRUGS (1)
  1. ZINACEF [Suspect]
     Indication: INFECTION
     Dosage: .75G PER DAY
     Route: 042
     Dates: start: 20131105, end: 20131105

REACTIONS (2)
  - Tremor [Recovering/Resolving]
  - Cyanosis [Recovering/Resolving]
